FAERS Safety Report 6657576-3 (Version None)
Quarter: 2010Q1

REPORT INFORMATION
  Report Type: 
  Country: None (occurrence: None)
  Receive Date: 20100330
  Receipt Date: 20100318
  Transmission Date: 20100710
  Serious: Yes (Death, Hospitalization)
  Sender: FDA-Public Use
  Company Number: NSADSS2002005226

PATIENT
  Age: 26 Year
  Sex: Male
  Weight: 90 kg

DRUGS (4)
  1. REMICADE [Suspect]
     Route: 041
     Dates: start: 20020111
  2. REMICADE [Suspect]
     Indication: CROHN'S DISEASE
     Route: 041
     Dates: start: 20020111
  3. PREDNISONE [Concomitant]
  4. MERCAPTOPURINE [Concomitant]

REACTIONS (5)
  - ACUTE HEPATIC FAILURE [None]
  - BACTERIAL SEPSIS [None]
  - DISSEMINATED INTRAVASCULAR COAGULATION [None]
  - RENAL FAILURE ACUTE [None]
  - VARICELLA [None]
